FAERS Safety Report 6479628-3 (Version None)
Quarter: 2009Q4

REPORT INFORMATION
  Report Type: 
  Country: None (occurrence: None)
  Receive Date: 20091207
  Receipt Date: 20091207
  Transmission Date: 20100525
  Serious: Yes (Hospitalization)
  Sender: FDA-Public Use
  Company Number: None

PATIENT
  Age: 80 Year
  Sex: Female
  Weight: 73.6 kg

DRUGS (6)
  1. BORTEZOMIB [Suspect]
     Indication: MULTIPLE MYELOMA
     Dosage: 2.4MG D1,4,8,11 IV (EVERY 21 DAYS)
     Route: 042
     Dates: start: 20091120
  2. BORTEZOMIB [Suspect]
     Indication: MULTIPLE MYELOMA
     Dosage: 2.4MG D1,4,8,11 IV (EVERY 21 DAYS)
     Route: 042
     Dates: start: 20091123
  3. BORTEZOMIB [Suspect]
     Indication: MULTIPLE MYELOMA
     Dosage: 2.4MG D1,4,8,11 IV (EVERY 21 DAYS)
     Route: 042
     Dates: start: 20091127
  4. BORTEZOMIB [Suspect]
     Indication: MULTIPLE MYELOMA
     Dosage: 2.4MG D1,4,8,11 IV (EVERY 21 DAYS)
     Route: 042
     Dates: start: 20091130
  5. DOXORUBICIN HCL [Suspect]
     Indication: MULTIPLE MYELOMA
     Dosage: (28MG D 1 AND 8 IV (EVERY 21 DAYS)
     Route: 042
     Dates: start: 20091120
  6. DOXORUBICIN HCL [Suspect]
     Indication: MULTIPLE MYELOMA
     Dosage: (28MG D 1 AND 8 IV (EVERY 21 DAYS)
     Route: 042
     Dates: start: 20091127

REACTIONS (2)
  - ASTHENIA [None]
  - FULL BLOOD COUNT DECREASED [None]
